FAERS Safety Report 21333207 (Version 2)
Quarter: 2022Q4

REPORT INFORMATION
  Report Type: Spontaneous
  Country: JP (occurrence: JP)
  Receive Date: 20220914
  Receipt Date: 20221003
  Transmission Date: 20230113
  Serious: Yes (Hospitalization)
  Sender: FDA-Public Use
  Company Number: JP-CHEMOCENTRYX, INC.-2022JPCCXI0276

PATIENT

DRUGS (12)
  1. TAVNEOS [Suspect]
     Active Substance: AVACOPAN
     Indication: Microscopic polyangiitis
     Dosage: 60 MG/DAY (60 MG,1 IN 1 D)
     Route: 048
     Dates: start: 20220714, end: 20220829
  2. RITUXIMAB [Suspect]
     Active Substance: RITUXIMAB
     Indication: Microscopic polyangiitis
     Dosage: (500 MG)
     Route: 042
     Dates: start: 20220712, end: 20220712
  3. RITUXIMAB [Suspect]
     Active Substance: RITUXIMAB
     Dosage: (500 MG)
     Route: 042
     Dates: start: 20220714
  4. RITUXIMAB [Suspect]
     Active Substance: RITUXIMAB
     Dosage: (500 MG)
     Route: 042
     Dates: start: 20220719, end: 20220719
  5. RITUXIMAB [Suspect]
     Active Substance: RITUXIMAB
     Dosage: (500 MG)
     Route: 042
     Dates: start: 20220726, end: 20220726
  6. RITUXIMAB [Suspect]
     Active Substance: RITUXIMAB
     Dosage: (500 MG)
     Route: 042
     Dates: start: 20220808, end: 20220808
  7. RITUXIMAB [Suspect]
     Active Substance: RITUXIMAB
     Dosage: (500 MG)
     Route: 042
     Dates: end: 20220829
  8. LEMBOREXANT [Suspect]
     Active Substance: LEMBOREXANT
     Indication: Product used for unknown indication
     Dosage: 5 MG (5 MG,1 IN 1 D)
     Route: 048
     Dates: start: 20220711, end: 20220829
  9. TRAZODONE HYDROCHLORIDE [Concomitant]
     Active Substance: TRAZODONE HYDROCHLORIDE
     Indication: Product used for unknown indication
     Dosage: 25 MG (25 MG,1 IN 1 D)
     Route: 048
     Dates: start: 20220711, end: 20220726
  10. ESOMEPRAZOLE MAGNESIUM [Concomitant]
     Active Substance: ESOMEPRAZOLE MAGNESIUM
     Indication: Product used for unknown indication
     Dosage: 20 MG (20 MG,1 IN 1 D)
     Route: 048
     Dates: start: 20220706
  11. PREDNISOLONE [Concomitant]
     Active Substance: PREDNISOLONE
     Indication: Product used for unknown indication
     Dosage: 35 MG (35 MG,1 IN 1 D)
     Dates: start: 20220708, end: 20220714
  12. PREDNISOLONE [Concomitant]
     Active Substance: PREDNISOLONE
     Dosage: 30 MG (30 MG,1 IN 1 D)
     Route: 065
     Dates: start: 20220903

REACTIONS (5)
  - Liver disorder [Recovering/Resolving]
  - Jaundice [Not Recovered/Not Resolved]
  - Cholelithiasis [Unknown]
  - Headache [Recovering/Resolving]
  - Nausea [Recovering/Resolving]

NARRATIVE: CASE EVENT DATE: 20220714
